FAERS Safety Report 14097965 (Version 1)
Quarter: 2017Q4

REPORT INFORMATION
  Report Type: Spontaneous
  Country: US (occurrence: US)
  Receive Date: 20171017
  Receipt Date: 20171017
  Transmission Date: 20180321
  Serious: No
  Sender: FDA-Public Use
  Company Number: US-MYLANLABS-2017M1053199

PATIENT
  Sex: Male

DRUGS (2)
  1. LORAZEPAM. [Suspect]
     Active Substance: LORAZEPAM
     Indication: CYCLIC VOMITING SYNDROME
     Dosage: UNK
  2. AMITRIPTYLINE [Suspect]
     Active Substance: AMITRIPTYLINE
     Indication: CYCLIC VOMITING SYNDROME
     Dosage: UNK

REACTIONS (3)
  - Vomiting [Unknown]
  - Hypersensitivity [Unknown]
  - Reaction to excipient [Unknown]
